FAERS Safety Report 23930858 (Version 4)
Quarter: 2025Q3

REPORT INFORMATION
  Report Type: Report from Study
  Country: CN (occurrence: CN)
  Receive Date: 20240603
  Receipt Date: 20250924
  Transmission Date: 20251021
  Serious: Yes (Other)
  Sender: ROCHE
  Company Number: CN-ROCHE-3569828

PATIENT
  Age: 67 Year
  Sex: Male
  Weight: 60 kg

DRUGS (36)
  1. POLATUZUMAB VEDOTIN [Suspect]
     Active Substance: POLATUZUMAB VEDOTIN
     Indication: Diffuse large B-cell lymphoma
     Route: 042
     Dates: start: 20231123, end: 20231123
  2. RITUXIMAB [Suspect]
     Active Substance: RITUXIMAB
     Indication: Diffuse large B-cell lymphoma
     Route: 042
     Dates: start: 20231122, end: 20231122
  3. CYCLOPHOSPHAMIDE [Suspect]
     Active Substance: CYCLOPHOSPHAMIDE
     Indication: Diffuse large B-cell lymphoma
     Route: 042
     Dates: start: 20231123, end: 20231123
  4. POTASSIUM CHLORIDE [Concomitant]
     Active Substance: POTASSIUM CHLORIDE
  5. TORSEMIDE [Concomitant]
     Active Substance: TORSEMIDE
  6. ENTECAVIR [Concomitant]
     Active Substance: ENTECAVIR
  7. HUMAN IMMUNOGLOBULIN G [Concomitant]
     Active Substance: HUMAN IMMUNOGLOBULIN G
  8. ACETYLCYSTEINE [Concomitant]
     Active Substance: ACETYLCYSTEINE
  9. Levofloxacin sodium chloride [Concomitant]
  10. MOXALACTAM DISODIUM [Concomitant]
     Active Substance: MOXALACTAM DISODIUM
  11. ACETAMINOPHEN [Concomitant]
     Active Substance: ACETAMINOPHEN
  12. PROMETHAZINE HYDROCHLORIDE [Concomitant]
     Active Substance: PROMETHAZINE HYDROCHLORIDE
  13. VITAMIN B6 [Concomitant]
     Active Substance: PYRIDOXINE HYDROCHLORIDE
  14. PALONOSETRON HYDROCHLORIDE [Concomitant]
     Active Substance: PALONOSETRON HYDROCHLORIDE
  15. Polyethylene glycol modified recombinant human granulocyte colony stim [Concomitant]
  16. ALBUMIN HUMAN [Concomitant]
     Active Substance: ALBUMIN HUMAN
  17. RECOMBINANT HUMAN THROMBOPOIETIN [Concomitant]
     Active Substance: RECOMBINANT HUMAN THROMBOPOIETIN
  18. Human granulocyte-stimulating factor [Concomitant]
  19. FUROSEMIDE [Concomitant]
     Active Substance: FUROSEMIDE
  20. DEXAMETHASONE SODIUM PHOSPHATE [Concomitant]
     Active Substance: DEXAMETHASONE SODIUM PHOSPHATE
  21. PROMETHAZINE [Concomitant]
     Active Substance: PROMETHAZINE HYDROCHLORIDE
  22. CEFACLOR [Concomitant]
     Active Substance: CEFACLOR
  23. METHOTREXATE [Concomitant]
     Active Substance: METHOTREXATE
  24. CYTARABINE HYDROCHLORIDE [Concomitant]
     Active Substance: CYTARABINE HYDROCHLORIDE
  25. SODIUM BICARBONATE [Concomitant]
     Active Substance: SODIUM BICARBONATE
  26. FEBUXOSTAT [Concomitant]
     Active Substance: FEBUXOSTAT
  27. CALCITONIN SALMON [Concomitant]
     Active Substance: CALCITONIN SALMON
  28. METHYLPREDNISOLONE SODIUM SUCCINATE [Concomitant]
     Active Substance: METHYLPREDNISOLONE SODIUM SUCCINATE
  29. OMEPRAZOLE SODIUM [Concomitant]
     Active Substance: OMEPRAZOLE SODIUM
  30. CEFTAZIDIME [Concomitant]
     Active Substance: CEFTAZIDIME
  31. SPIRONOLACTONE [Concomitant]
     Active Substance: SPIRONOLACTONE
  32. AMBROXOL HYDROCHLORIDE [Concomitant]
     Active Substance: AMBROXOL HYDROCHLORIDE
  33. CILASTATIN SODIUM\IMIPENEM [Concomitant]
     Active Substance: CILASTATIN SODIUM\IMIPENEM
  34. FIBRINOGEN HUMAN [Concomitant]
     Active Substance: FIBRINOGEN HUMAN
  35. Sacubactril valsartan sodium [Concomitant]
  36. LIDOCAINE HYDROCHLORIDE [Concomitant]
     Active Substance: LIDOCAINE HYDROCHLORIDE

REACTIONS (5)
  - Blood potassium decreased [Not Recovered/Not Resolved]
  - Blood calcium decreased [Recovered/Resolved]
  - Monocyte count decreased [Recovered/Resolved]
  - Anaemia [Not Recovered/Not Resolved]
  - Lymphocyte count decreased [Not Recovered/Not Resolved]

NARRATIVE: CASE EVENT DATE: 20231124
